FAERS Safety Report 14560354 (Version 1)
Quarter: 2018Q1

REPORT INFORMATION
  Report Type: Spontaneous
  Country: IN (occurrence: IN)
  Receive Date: 20180222
  Receipt Date: 20180222
  Transmission Date: 20180509
  Serious: Yes (Death, Hospitalization, Other)
  Sender: FDA-Public Use
  Company Number: IN-VISTAPHARM, INC.-VER201802-000423

PATIENT
  Age: 58 Year
  Sex: Male

DRUGS (3)
  1. ACETAZOLAMIDE. [Concomitant]
     Active Substance: ACETAZOLAMIDE
  2. DEXAMETHASONE. [Concomitant]
     Active Substance: DEXAMETHASONE
  3. PHENYTOIN. [Suspect]
     Active Substance: PHENYTOIN
     Indication: CONVULSION PROPHYLAXIS

REACTIONS (6)
  - Toxic epidermal necrolysis [Fatal]
  - Acute respiratory distress syndrome [Not Recovered/Not Resolved]
  - Hypoxia [Not Recovered/Not Resolved]
  - Stevens-Johnson syndrome [Fatal]
  - Dyspnoea [Not Recovered/Not Resolved]
  - Hypotension [Not Recovered/Not Resolved]
